FAERS Safety Report 7952119-6 (Version None)
Quarter: 2011Q4

REPORT INFORMATION
  Report Type: 
  Country: None (occurrence: None)
  Receive Date: 20111201
  Receipt Date: 20111116
  Transmission Date: 20120403
  Serious: Yes (Other)
  Sender: FDA-Public Use
  Company Number: PHHY2011JP101033

PATIENT
  Sex: Female

DRUGS (5)
  1. LANSOPRAZOLE [Concomitant]
     Indication: PROPHYLAXIS
     Dosage: 15 MG, DAILY
     Route: 048
     Dates: start: 20100707, end: 20100722
  2. FLOMOX [Concomitant]
     Dosage: 300 MG, DAILY
     Route: 048
     Dates: start: 20100705, end: 20100712
  3. PREDNISOLONE [Concomitant]
     Indication: CHRONIC MYELOID LEUKAEMIA
     Dosage: 60 MG DAILY
     Route: 048
     Dates: start: 20100712, end: 20100716
  4. ONCOVIN [Concomitant]
     Indication: CHRONIC MYELOID LEUKAEMIA
     Dosage: 2 MG, DAILY
     Route: 042
     Dates: start: 20100702
  5. TASIGNA [Suspect]
     Indication: CHRONIC MYELOID LEUKAEMIA
     Dosage: 800 MG, DAILY
     Route: 048
     Dates: start: 20100702, end: 20100722

REACTIONS (4)
  - GENE MUTATION IDENTIFICATION TEST POSITIVE [None]
  - BLAST CRISIS IN MYELOGENOUS LEUKAEMIA [None]
  - PLATELET COUNT DECREASED [None]
  - DRUG INEFFECTIVE [None]
